FAERS Safety Report 18159208 (Version 3)
Quarter: 2020Q3

REPORT INFORMATION
  Report Type: Other
  Country: CA (occurrence: CA)
  Receive Date: 20200817
  Receipt Date: 20200914
  Transmission Date: 20201103
  Serious: Yes (Other)
  Sender: FDA-Public Use
  Company Number: CA-APOTEX-2020AP015849

PATIENT
  Age: 73 Year
  Sex: Female

DRUGS (1)
  1. SALBUTAMOL [Suspect]
     Active Substance: ALBUTEROL
     Indication: PRODUCT USED FOR UNKNOWN INDICATION
     Dosage: 200 MICROGRAM
     Route: 065

REACTIONS (8)
  - Blood test abnormal [Unknown]
  - Bronchial obstruction [Unknown]
  - Lung hyperinflation [Unknown]
  - Productive cough [Unknown]
  - Hyperoxia [Unknown]
  - Asthma [Unknown]
  - Dyspnoea [Unknown]
  - Drug ineffective [Unknown]
